FAERS Safety Report 14142739 (Version 1)
Quarter: 2017Q4

REPORT INFORMATION
  Report Type: Spontaneous
  Country: US (occurrence: None)
  Receive Date: 20171030
  Receipt Date: 20171030
  Transmission Date: 20180321
  Serious: Yes (Life-Threatening, Hospitalization)
  Sender: FDA-Public Use
  Company Number: None

PATIENT
  Age: 5 Year
  Sex: Male
  Weight: 19.9 kg

DRUGS (1)
  1. OPTIRAY 320 [Suspect]
     Active Substance: IOVERSOL
     Indication: COMPUTERISED TOMOGRAM
     Route: 042
     Dates: start: 20170429, end: 20170429

REACTIONS (5)
  - Screaming [None]
  - Erythema [None]
  - Dyspnoea [None]
  - Contrast media allergy [None]
  - Vomiting [None]

NARRATIVE: CASE EVENT DATE: 20170429
